FAERS Safety Report 4723541-6 (Version None)
Quarter: 2005Q3

REPORT INFORMATION
  Report Type: 
  Country: None (occurrence: None)
  Receive Date: 20050725
  Receipt Date: 20050713
  Transmission Date: 20060218
  Serious: Yes (Hospitalization)
  Sender: FDA-Public Use
  Company Number: IT-AMGEN-UK142548

PATIENT
  Age: 55 Year
  Sex: Female

DRUGS (2)
  1. NEUPOGEN [Suspect]
     Indication: CHEMOTHERAPY
     Route: 058
     Dates: start: 20050623, end: 20050623
  2. ITRACONAZOLE [Concomitant]
     Route: 048

REACTIONS (4)
  - PALPITATIONS [None]
  - SYNCOPE [None]
  - TACHYCARDIA PAROXYSMAL [None]
  - THROMBOCYTOPENIA [None]
